FAERS Safety Report 5316252-X (Version None)
Quarter: 2007Q2

REPORT INFORMATION
  Report Type: 
  Country: None (occurrence: None)
  Receive Date: 20070503
  Receipt Date: 20070425
  Transmission Date: 20071010
  Serious: Yes (Hospitalization, Disabling, Other)
  Sender: FDA-Public Use
  Company Number: US-MERCK-0509USA04012

PATIENT
  Age: 75 Year
  Sex: Female
  Weight: 52 kg

DRUGS (4)
  1. FOSAMAX [Suspect]
     Indication: OSTEOPOROSIS
     Route: 048
     Dates: start: 19970101
  2. FOSAMAX [Suspect]
     Route: 048
     Dates: start: 20060211
  3. FOSAMAX [Suspect]
     Route: 048
     Dates: end: 20050701
  4. FOSAMAX PLUS D [Concomitant]
     Route: 048

REACTIONS (11)
  - ANXIETY [None]
  - BLADDER PROLAPSE [None]
  - FALL [None]
  - HEAD INJURY [None]
  - HYPERTENSION [None]
  - IMPAIRED HEALING [None]
  - MUSCULAR DYSTROPHY [None]
  - MYOPATHY [None]
  - OSTEONECROSIS [None]
  - SPINAL COMPRESSION FRACTURE [None]
  - VAGINAL DISORDER [None]
